FAERS Safety Report 4980857-6 (Version None)
Quarter: 2006Q2

REPORT INFORMATION
  Report Type: 
  Country: None (occurrence: None)
  Receive Date: 20060418
  Receipt Date: 20051006
  Transmission Date: 20061013
  Serious: Yes (Hospitalization, Other)
  Sender: FDA-Public Use
  Company Number: 2006047230

PATIENT
  Age: 67 Year
  Sex: Female

DRUGS (3)
  1. BEXTRA [Suspect]
     Indication: RHEUMATOID ARTHRITIS
     Dosage: 20 MG (20 MG, 1 IN 1 D), UNKNOWN
     Route: 065
     Dates: start: 20020101
  2. METHOTREXATE [Suspect]
     Indication: RHEUMATOID ARTHRITIS
     Dosage: UNK (7.5 MG, UNKNOWN), UNKNOWN
     Route: 065
  3. KENALOG [Suspect]
     Indication: RHEUMATOID ARTHRITIS
     Dosage: UNK (80 MG, UNKNOWN), INTRAMUSCULAR
     Route: 030
     Dates: start: 20040101

REACTIONS (35)
  - ANOREXIA [None]
  - ARTHRALGIA [None]
  - ASTHENIA [None]
  - CARDIAC FAILURE CONGESTIVE [None]
  - CONDITION AGGRAVATED [None]
  - CONJUNCTIVITIS [None]
  - CULTURE URINE POSITIVE [None]
  - ENDOCARDITIS BACTERIAL [None]
  - EXTRADURAL ABSCESS [None]
  - FORMICATION [None]
  - GASTROINTESTINAL NECROSIS [None]
  - HALLUCINATION, VISUAL [None]
  - HEPATITIS [None]
  - HYPOXIA [None]
  - INTESTINAL INFARCTION [None]
  - JOINT SWELLING [None]
  - MENTAL STATUS CHANGES [None]
  - MUSCULAR WEAKNESS [None]
  - NERVOUS SYSTEM DISORDER [None]
  - NEUROLOGICAL SYMPTOM [None]
  - ORAL DISCOMFORT [None]
  - PLATELET COUNT INCREASED [None]
  - PSEUDOMONAL SEPSIS [None]
  - RECTAL HAEMORRHAGE [None]
  - RENAL FAILURE ACUTE [None]
  - RESPIRATORY FAILURE [None]
  - RHEUMATOID ARTHRITIS [None]
  - SEPSIS [None]
  - SEPTIC EMBOLUS [None]
  - STAPHYLOCOCCAL SCALDED SKIN SYNDROME [None]
  - STEVENS-JOHNSON SYNDROME [None]
  - SYNOVITIS [None]
  - TACHYCARDIA [None]
  - TOXIC EPIDERMAL NECROLYSIS [None]
  - VASCULITIS [None]
